FAERS Safety Report 22181892 (Version 4)
Quarter: 2023Q2

REPORT INFORMATION
  Report Type: Spontaneous
  Country: CN (occurrence: CN)
  Receive Date: 20230406
  Receipt Date: 20230421
  Transmission Date: 20230722
  Serious: Yes (Life-Threatening, Hospitalization, Other)
  Sender: FDA-Public Use
  Company Number: CN-002147023-NVSC2023CN080233

PATIENT
  Age: 71 Year
  Sex: Male
  Weight: 60 kg

DRUGS (5)
  1. COSENTYX [Suspect]
     Active Substance: SECUKINUMAB
     Indication: Psoriasis
     Dosage: 300 MG, QW (PATIENT HAD FINISHES 8 DOSES) (2ML EACH TIME)
     Route: 058
     Dates: start: 20230217
  2. COSENTYX [Suspect]
     Active Substance: SECUKINUMAB
     Dosage: 300 MG, QW (SECOND INJECTION)
     Route: 058
  3. COSENTYX [Suspect]
     Active Substance: SECUKINUMAB
     Dosage: 300 MG, QW (THIRD INJECTION)
     Route: 058
  4. COSENTYX [Suspect]
     Active Substance: SECUKINUMAB
     Dosage: 300 MG, QW (FOURTH INJECTION)
     Route: 058
  5. POLYETHYLENE GLYCOL 4000 [Concomitant]
     Active Substance: POLYETHYLENE GLYCOL 4000
     Indication: Product used for unknown indication
     Dosage: 10 G, BID (POWDER)
     Route: 045

REACTIONS (67)
  - Pneumonia [Recovering/Resolving]
  - Renal failure [Recovering/Resolving]
  - Shock [Recovering/Resolving]
  - Multiple organ dysfunction syndrome [Recovering/Resolving]
  - Platelet count decreased [Recovering/Resolving]
  - Confusional state [Unknown]
  - Hypoproteinaemia [Recovering/Resolving]
  - Hypotension [Unknown]
  - Coagulation test abnormal [Unknown]
  - Inflammation [Unknown]
  - Speech disorder [Unknown]
  - Restlessness [Unknown]
  - Coagulopathy [Recovering/Resolving]
  - Hypernatraemia [Recovering/Resolving]
  - Anaemia [Recovering/Resolving]
  - Conjunctivitis [Recovered/Resolved]
  - Hypophagia [Recovering/Resolving]
  - Somnolence [Unknown]
  - Coordination abnormal [Unknown]
  - Movement disorder [Unknown]
  - Depressed level of consciousness [Recovering/Resolving]
  - General physical health deterioration [Recovering/Resolving]
  - Erythrodermic psoriasis [Unknown]
  - Pruritus [Unknown]
  - Altered state of consciousness [Unknown]
  - Procalcitonin increased [Unknown]
  - Oedema peripheral [Unknown]
  - Myoglobin blood increased [Unknown]
  - Blood creatine phosphokinase MB increased [Unknown]
  - Neurodegenerative disorder [Unknown]
  - Hepatic cyst [Unknown]
  - Brain natriuretic peptide increased [Unknown]
  - Hepatic steatosis [Unknown]
  - Lymphadenopathy [Unknown]
  - Prostatic calcification [Unknown]
  - Dependence on respirator [Recovering/Resolving]
  - Decreased appetite [Unknown]
  - Heart rate decreased [Unknown]
  - Blood creatinine increased [Unknown]
  - Poor quality sleep [Unknown]
  - Generalised oedema [Unknown]
  - Erythema [Unknown]
  - Asthenia [Unknown]
  - Nausea [Unknown]
  - Inflammatory marker increased [Unknown]
  - Faeces discoloured [Unknown]
  - Diarrhoea [Unknown]
  - Antithrombin III decreased [Unknown]
  - Neutrophil percentage increased [Unknown]
  - Lymphocyte percentage decreased [Unknown]
  - Eosinophil percentage decreased [Unknown]
  - Neutrophil count increased [Unknown]
  - Eosinophil count decreased [Unknown]
  - Red blood cell count decreased [Unknown]
  - Haemoglobin decreased [Unknown]
  - Haematocrit decreased [Unknown]
  - C-reactive protein increased [Unknown]
  - Blood urea increased [Unknown]
  - Blood albumin decreased [Unknown]
  - Blood bilirubin increased [Unknown]
  - White blood cell count increased [Unknown]
  - Prothrombin time prolonged [Unknown]
  - International normalised ratio increased [Unknown]
  - Prothrombin level decreased [Unknown]
  - Activated partial thromboplastin time prolonged [Unknown]
  - Skin exfoliation [Unknown]
  - Blood fibrinogen decreased [Unknown]

NARRATIVE: CASE EVENT DATE: 20230317
